FAERS Safety Report 10600557 (Version 1)
Quarter: 2014Q4

REPORT INFORMATION
  Report Type: Spontaneous
  Country: DE (occurrence: DE)
  Receive Date: 20141124
  Receipt Date: 20141124
  Transmission Date: 20150529
  Serious: Yes (Hospitalization, Other)
  Sender: FDA-Public Use
  Company Number: DE-AUROBINDO-AUR-APL-2014-12215

PATIENT
  Age: 63 Year
  Sex: Female

DRUGS (16)
  1. SEROQUEL XR [Interacting]
     Active Substance: QUETIAPINE FUMARATE
     Dosage: 500 MG, DAILY
     Route: 048
     Dates: start: 20130930, end: 20131005
  2. TEGRETAL [Interacting]
     Active Substance: CARBAMAZEPINE
     Dosage: 300 MG, DAILY
     Route: 048
     Dates: start: 20130908, end: 20130914
  3. SEROQUEL XR [Interacting]
     Active Substance: QUETIAPINE FUMARATE
     Dosage: 300 MG, DAILY
     Route: 048
     Dates: start: 20130907, end: 20130910
  4. SEROQUEL XR [Interacting]
     Active Substance: QUETIAPINE FUMARATE
     Dosage: 400 MG, DAILY
     Route: 048
     Dates: start: 20130911, end: 20130929
  5. TEGRETAL [Interacting]
     Active Substance: CARBAMAZEPINE
     Dosage: 500 MG, DAILY
     Route: 048
     Dates: start: 20130828, end: 20130902
  6. TEGRETAL [Interacting]
     Active Substance: CARBAMAZEPINE
     Dosage: 400 MG, DAILY
     Route: 048
     Dates: start: 20130903, end: 20130907
  7. RAMIPRIL 2.5MG [Interacting]
     Active Substance: RAMIPRIL
     Indication: PRODUCT USED FOR UNKNOWN INDICATION
     Dosage: 2.5 MG, DAILY
     Route: 065
     Dates: end: 20131005
  8. SEROQUEL XR [Interacting]
     Active Substance: QUETIAPINE FUMARATE
     Indication: PRODUCT USED FOR UNKNOWN INDICATION
     Dosage: 200 MG, DAILY
     Route: 048
     Dates: end: 20130906
  9. TEGRETAL [Interacting]
     Active Substance: CARBAMAZEPINE
     Indication: PRODUCT USED FOR UNKNOWN INDICATION
     Dosage: 600 MG, DAILY
     Route: 048
     Dates: end: 20130827
  10. HYDROCHLOROTHIAZIDE. [Suspect]
     Active Substance: HYDROCHLOROTHIAZIDE
     Indication: PRODUCT USED FOR UNKNOWN INDICATION
     Dosage: 5.75 MG, DAILY
     Route: 048
     Dates: end: 20131005
  11. SOLIFENACIN SUCCINATE [Concomitant]
     Active Substance: SOLIFENACIN SUCCINATE
     Indication: PRODUCT USED FOR UNKNOWN INDICATION
     Dosage: UNK
     Route: 065
  12. TEGRETAL [Interacting]
     Active Substance: CARBAMAZEPINE
     Dosage: 200 MG, DAILY
     Route: 048
     Dates: start: 20130915, end: 20130929
  13. METOPROLOL [Concomitant]
     Active Substance: METOPROLOL
     Indication: PRODUCT USED FOR UNKNOWN INDICATION
     Dosage: UNK
     Route: 065
  14. TEGRETAL [Interacting]
     Active Substance: CARBAMAZEPINE
     Dosage: 100 MG, DAILY
     Route: 048
     Dates: start: 20130930, end: 20131004
  15. CIPRALEX [Suspect]
     Active Substance: ESCITALOPRAM OXALATE
     Indication: PRODUCT USED FOR UNKNOWN INDICATION
     Dosage: 10 MG, DAILY
     Route: 048
     Dates: start: 20130912, end: 20131005
  16. SIMVASTATIN. [Concomitant]
     Active Substance: SIMVASTATIN
     Indication: PRODUCT USED FOR UNKNOWN INDICATION
     Dosage: UNK
     Route: 065

REACTIONS (4)
  - Hyponatraemia [Recovered/Resolved]
  - Hypotension [Unknown]
  - Blood potassium decreased [Unknown]
  - Drug interaction [Recovered/Resolved]

NARRATIVE: CASE EVENT DATE: 20131005
